FAERS Safety Report 21996417 (Version 1)
Quarter: 2023Q1

REPORT INFORMATION
  Report Type: Spontaneous
  Country: US (occurrence: US)
  Receive Date: 20230215
  Receipt Date: 20230215
  Transmission Date: 20230417
  Serious: No
  Sender: FDA-Public Use
  Company Number: US-PFIZER INC-PV202300028238

PATIENT
  Age: 63 Year
  Sex: Female

DRUGS (1)
  1. IBRANCE [Suspect]
     Active Substance: PALBOCICLIB
     Indication: Breast cancer female
     Dosage: 125 MG (TAKE 1 TABLET DAILY WITH BREAKFAST ON DAYS 1-21 EVERY 28 DAYS)
     Route: 048

REACTIONS (2)
  - Laboratory test abnormal [Recovered/Resolved]
  - Fatigue [Recovered/Resolved]
